FAERS Safety Report 4497281-5 (Version None)
Quarter: 2004Q4

REPORT INFORMATION
  Report Type: 
  Country: None (occurrence: None)
  Receive Date: 20041110
  Receipt Date: 20041105
  Transmission Date: 20050328
  Serious: Yes (Hospitalization)
  Sender: FDA-Public Use
  Company Number: US-JNJFOC-20040807378

PATIENT
  Sex: Female
  Weight: 79.38 kg

DRUGS (21)
  1. DURAGESIC [Suspect]
     Route: 062
     Dates: start: 20030701
  2. FELDENE [Concomitant]
     Route: 049
  3. MEPROZINE [Concomitant]
  4. MEPROZINE [Concomitant]
     Dosage: 50/25 MG
  5. PROSAC [Concomitant]
  6. CLONAZEPAM [Concomitant]
     Dosage: PRN
  7. SKELAXIN [Concomitant]
     Dosage: 4 TO 6 HOURS
  8. OPTIMINE [Concomitant]
     Dosage: PRN
  9. BENEDRYL [Concomitant]
     Dosage: PRN
  10. TAGAMENT [Concomitant]
     Dosage: PRN
  11. SYNTHROID [Concomitant]
  12. URECHOLINE [Concomitant]
  13. URISED [Concomitant]
  14. URISED [Concomitant]
  15. URISED [Concomitant]
  16. URISED [Concomitant]
  17. URISED [Concomitant]
  18. URISED [Concomitant]
  19. URISED [Concomitant]
     Dosage: PRN
  20. LASIX [Concomitant]
     Dosage: PRN
  21. PREMARIN [Concomitant]

REACTIONS (2)
  - ABNORMAL BEHAVIOUR [None]
  - CARDIAC FAILURE CONGESTIVE [None]
